FAERS Safety Report 17997142 (Version 3)
Quarter: 2020Q4

REPORT INFORMATION
  Report Type: Spontaneous
  Country: FR (occurrence: FR)
  Receive Date: 20200708
  Receipt Date: 20201009
  Transmission Date: 20210113
  Serious: Yes (Hospitalization, Other)
  Sender: FDA-Public Use
  Company Number: NVSC2020FR191440

PATIENT
  Age: 17 Year
  Sex: Male

DRUGS (14)
  1. AMSACRINE [Concomitant]
     Active Substance: AMSACRINE
     Indication: ACUTE MYELOID LEUKAEMIA
     Dosage: DURING CONSOLIDATION THERAPY
     Route: 065
  2. FLUDARABINE PHOSPHATE. [Suspect]
     Active Substance: FLUDARABINE PHOSPHATE
     Indication: ACUTE MYELOID LEUKAEMIA REFRACTORY
     Dosage: 30 MG/M2
     Route: 065
  3. MITOXANTRONE [Suspect]
     Active Substance: MITOXANTRONE HYDROCHLORIDE
     Indication: ACUTE MYELOID LEUKAEMIA
     Dosage: 12 MG/M2 FOR 5 DAYS DURING INDUCTION THERAPY
     Route: 065
  4. CYCLOPHOSPHAMIDE. [Suspect]
     Active Substance: CYCLOPHOSPHAMIDE
     Indication: DRUG THERAPY
     Dosage: UNK
     Route: 065
  5. CYTARABINE. [Suspect]
     Active Substance: CYTARABINE
     Indication: ACUTE MYELOID LEUKAEMIA REFRACTORY
     Dosage: 2000 MG/M2 ON DAYS 1 TO 5
     Route: 065
  6. CYTARABINE. [Suspect]
     Active Substance: CYTARABINE
     Dosage: 200 MG/M2, CONTINUOUS INJECTION FOR7 DAYS DURING INDUCTION THERAPY
     Route: 037
  7. CYTARABINE. [Suspect]
     Active Substance: CYTARABINE
     Dosage: DURING INDUCTION THERAPY
     Route: 037
  8. GEMTUZUMAB OZOGAMICIN [Suspect]
     Active Substance: GEMTUZUMAB OZOGAMICIN
     Indication: ACUTE MYELOID LEUKAEMIA REFRACTORY
     Dosage: (2 X 3 MG/M2) AS SUPPLEMENTARY COURSE
     Route: 041
  9. DEXAMETHASONE. [Suspect]
     Active Substance: DEXAMETHASONE
     Indication: ACUTE MYELOID LEUKAEMIA
     Dosage: DURING INDUCTION THERAPY
     Route: 037
  10. BUSULFAN. [Suspect]
     Active Substance: BUSULFAN
     Indication: DRUG THERAPY
     Dosage: UNK
     Route: 065
  11. METHOTREXATE. [Suspect]
     Active Substance: METHOTREXATE
     Indication: ACUTE MYELOID LEUKAEMIA
     Dosage: UNK, DURING INDUCTION THERAPY
     Route: 037
  12. CYTARABINE. [Suspect]
     Active Substance: CYTARABINE
     Indication: ACUTE MYELOID LEUKAEMIA
     Dosage: 3 G/M2, Q12H DURING CONSOLIDATION THERAPY FOR 3 DAYS
     Route: 065
  13. GEMTUZUMAB OZOGAMICIN [Suspect]
     Active Substance: GEMTUZUMAB OZOGAMICIN
     Dosage: 3 MG/M2, ON DAYS 1, 4 AND 7
     Route: 041
  14. HYDROCORTICONE [Suspect]
     Active Substance: HYDROCORTISONE
     Indication: PRODUCT USED FOR UNKNOWN INDICATION
     Dosage: UNK
     Route: 037

REACTIONS (4)
  - Drug resistance [Unknown]
  - Staphylococcal sepsis [Unknown]
  - Venoocclusive liver disease [Unknown]
  - Drug ineffective [Unknown]
